FAERS Safety Report 6367568-X (Version None)
Quarter: 2009Q3

REPORT INFORMATION
  Report Type: 
  Country: None (occurrence: None)
  Receive Date: 20090921
  Receipt Date: 20090911
  Transmission Date: 20100115
  Serious: Yes (Other)
  Sender: FDA-Public Use
  Company Number: US-PFIZER INC-2009268927

PATIENT
  Sex: Female

DRUGS (7)
  1. PROVERA [Suspect]
     Indication: HORMONE REPLACEMENT THERAPY
     Dosage: 2.5 MG, UNK
  2. PROVERA [Suspect]
     Dosage: 10 MG, UNK
     Dates: start: 19900101, end: 19970101
  3. PREMARIN [Suspect]
     Indication: HORMONE REPLACEMENT THERAPY
     Dosage: 0.625 MG, UNK
     Dates: start: 19900101, end: 19970101
  4. PREMPRO [Suspect]
     Indication: HORMONE REPLACEMENT THERAPY
     Dosage: 0.625/2.5MG
     Dates: start: 19970101, end: 20020101
  5. PREMPRO [Suspect]
     Dosage: 0.625/5MG
     Dates: start: 19970101, end: 20020101
  6. ESTROGENS [Suspect]
     Indication: HORMONE REPLACEMENT THERAPY
  7. ACTIVELLA [Suspect]
     Indication: HORMONE REPLACEMENT THERAPY
     Dosage: 1/0.5MG

REACTIONS (1)
  - BREAST CANCER FEMALE [None]
